FAERS Safety Report 13092823 (Version 1)
Quarter: 2017Q1

REPORT INFORMATION
  Report Type: Spontaneous
  Country: US (occurrence: US)
  Receive Date: 20170106
  Receipt Date: 20170106
  Transmission Date: 20170428
  Serious: No
  Sender: FDA-Public Use
  Company Number: US-JNJFOC-20161114627

PATIENT
  Age: 72 Year
  Sex: Male
  Weight: 95.26 kg

DRUGS (1)
  1. YONDELIS [Suspect]
     Active Substance: TRABECTEDIN
     Indication: SARCOMA
     Route: 042

REACTIONS (3)
  - Medication error [Unknown]
  - Wrong technique in product usage process [Unknown]
  - Underdose [Unknown]
